FAERS Safety Report 10047458 (Version 1)
Quarter: 2014Q1

REPORT INFORMATION
  Report Type: Spontaneous
  Country: US (occurrence: None)
  Receive Date: 20140327
  Receipt Date: 20140327
  Transmission Date: 20141002
  Serious: Yes (Other)
  Sender: FDA-Public Use
  Company Number: AUR-APL-2014-03423

PATIENT
  Sex: Female

DRUGS (1)
  1. PAROXETINE [Suspect]
     Indication: DEPRESSION

REACTIONS (9)
  - Depression [None]
  - Restlessness [None]
  - Hallucinations, mixed [None]
  - Confusional state [None]
  - Blood pressure increased [None]
  - Coordination abnormal [None]
  - Body temperature increased [None]
  - Heart rate increased [None]
  - Anxiety [None]
